FAERS Safety Report 9785661 (Version 1)
Quarter: 2013Q4

REPORT INFORMATION
  Report Type: Spontaneous
  Country: FR (occurrence: None)
  Receive Date: 20131224
  Receipt Date: 20131224
  Transmission Date: 20140711
  Serious: Yes (Hospitalization, Other)
  Sender: FDA-Public Use
  Company Number: 2013/222

PATIENT
  Age: 84 Year
  Sex: Female

DRUGS (5)
  1. LEVETIRACETAM [Suspect]
  2. SODIUM VALPROATE [Concomitant]
  3. LAMOTRIGINE [Concomitant]
  4. LOPRAZOLAM [Concomitant]
  5. FUROSEMIDE [Concomitant]

REACTIONS (4)
  - Encephalopathy [None]
  - Grand mal convulsion [None]
  - Condition aggravated [None]
  - Drug ineffective [None]
